FAERS Safety Report 22372683 (Version 1)
Quarter: 2023Q2

REPORT INFORMATION
  Report Type: Report from Study
  Country: US (occurrence: US)
  Receive Date: 20230526
  Receipt Date: 20230526
  Transmission Date: 20230721
  Serious: No
  Sender: FDA-Public Use
  Company Number: US-PFIZER INC-US-GBT-019807

PATIENT
  Age: 24 Year
  Sex: Male

DRUGS (16)
  1. VOXELOTOR [Suspect]
     Active Substance: VOXELOTOR
     Indication: Anaemia
     Dosage: 1500 MG, 1X/DAY
     Dates: start: 20200109, end: 202208
  2. VOXELOTOR [Suspect]
     Active Substance: VOXELOTOR
     Indication: Transfusion
  3. VOXELOTOR [Suspect]
     Active Substance: VOXELOTOR
     Indication: Sickle cell disease
  4. ELIQUIS [Concomitant]
     Active Substance: APIXABAN
     Indication: Thrombosis
     Dosage: 5 MG, 2X/DAY
     Route: 048
     Dates: start: 20210317, end: 20211115
  5. ELIQUIS [Concomitant]
     Active Substance: APIXABAN
     Indication: Deep vein thrombosis
     Dosage: 10 MG, 2X/DAY
     Route: 048
     Dates: start: 20220603, end: 20220610
  6. ELIQUIS [Concomitant]
     Active Substance: APIXABAN
     Indication: Thrombosis prophylaxis
     Dosage: 5 MG, 2X/DAY
     Route: 048
     Dates: start: 20220610, end: 20220828
  7. ELIQUIS [Concomitant]
     Active Substance: APIXABAN
     Indication: Sickle cell disease
  8. BUTRANS [Concomitant]
     Active Substance: BUPRENORPHINE
     Indication: Sickle cell disease
     Dosage: 10 MCG/HR TRANSDERMAL PATCH, APPLY 1 PATCH EVERY WEEK
     Route: 062
     Dates: start: 20220629
  9. GABAPENTIN [Concomitant]
     Active Substance: GABAPENTIN
     Indication: Sickle cell disease
     Dosage: 800 MG, 3X/DAY
     Route: 048
     Dates: start: 20211220
  10. GLUTAMINE [LEVOGLUTAMIDE] [Concomitant]
     Indication: Sickle cell disease
     Dosage: 10 G, 2X/DAY
     Route: 048
     Dates: start: 20190603
  11. HYDROXYUREA [Concomitant]
     Active Substance: HYDROXYUREA
     Indication: Sickle cell disease
     Dosage: 1500 MG, 1X/DAY
     Route: 048
     Dates: start: 20160926
  12. OXYCODONE [Concomitant]
     Active Substance: OXYCODONE
     Indication: Sickle cell disease
     Dosage: 10 MG, Q4H PRN
     Route: 048
     Dates: start: 20160926, end: 20201106
  13. OXYCODONE [Concomitant]
     Active Substance: OXYCODONE
     Dosage: 15 MG, Q4H PRN
     Route: 048
     Dates: start: 20201106, end: 20211220
  14. OXYCODONE [Concomitant]
     Active Substance: OXYCODONE
     Dosage: 30 MG, Q4H PRN
     Route: 048
     Dates: start: 20211220
  15. FOLIC ACID [Concomitant]
     Active Substance: FOLIC ACID
     Indication: Sickle cell disease
     Dosage: 1 MG, 1X/DAY
     Route: 048
  16. VITAMIN D2 [Concomitant]
     Active Substance: ERGOCALCIFEROL
     Indication: Vitamin D deficiency
     Dosage: 50000 IU, EVERY 14 DAYS
     Route: 048

REACTIONS (1)
  - Headache [Recovered/Resolved]

NARRATIVE: CASE EVENT DATE: 20220801
